FAERS Safety Report 19869779 (Version 1)
Quarter: 2021Q3

REPORT INFORMATION
  Report Type: Report from Study
  Country: US (occurrence: US)
  Receive Date: 20210922
  Receipt Date: 20210922
  Transmission Date: 20211014
  Serious: Yes (Hospitalization, Other)
  Sender: FDA-Public Use
  Company Number: US-TAKEDA-2021TUS031685

PATIENT
  Age: 7 Year
  Sex: Female
  Weight: 18 kg

DRUGS (8)
  1. TEDUGLUTIDE [Suspect]
     Active Substance: TEDUGLUTIDE
     Indication: SHORT-BOWEL SYNDROME
     Dosage: 0.8 MILLIGRAM, QD
     Route: 058
     Dates: start: 20210317
  2. TEDUGLUTIDE [Suspect]
     Active Substance: TEDUGLUTIDE
     Indication: SHORT-BOWEL SYNDROME
     Dosage: 0.8 MILLIGRAM, QD
     Route: 058
     Dates: start: 20210317
  3. TEDUGLUTIDE [Suspect]
     Active Substance: TEDUGLUTIDE
     Indication: SHORT-BOWEL SYNDROME
     Dosage: 0.8 MILLIGRAM, QD
     Route: 058
     Dates: start: 20210317
  4. TEDUGLUTIDE [Suspect]
     Active Substance: TEDUGLUTIDE
     Indication: PULMONARY ARTERIAL HYPERTENSION
     Dosage: 0.8 MILLIGRAM, QD
     Route: 058
     Dates: start: 202102
  5. TEDUGLUTIDE [Suspect]
     Active Substance: TEDUGLUTIDE
     Indication: SHORT-BOWEL SYNDROME
     Dosage: 0.8 MILLIGRAM, QD
     Route: 058
     Dates: start: 20210317
  6. TEDUGLUTIDE [Suspect]
     Active Substance: TEDUGLUTIDE
     Indication: PULMONARY ARTERIAL HYPERTENSION
     Dosage: 0.8 MILLIGRAM, QD
     Route: 058
     Dates: start: 202102
  7. TEDUGLUTIDE [Suspect]
     Active Substance: TEDUGLUTIDE
     Indication: PULMONARY ARTERIAL HYPERTENSION
     Dosage: 0.8 MILLIGRAM, QD
     Route: 058
     Dates: start: 202102
  8. TEDUGLUTIDE [Suspect]
     Active Substance: TEDUGLUTIDE
     Indication: PULMONARY ARTERIAL HYPERTENSION
     Dosage: 0.8 MILLIGRAM, QD
     Route: 058
     Dates: start: 202102

REACTIONS (3)
  - Respiratory tract infection [Unknown]
  - Endotracheal intubation [Unknown]
  - COVID-19 [Unknown]

NARRATIVE: CASE EVENT DATE: 20210510
